FAERS Safety Report 20491256 (Version 1)
Quarter: 2022Q1

REPORT INFORMATION
  Report Type: Spontaneous
  Country: US (occurrence: None)
  Receive Date: 20220218
  Receipt Date: 20220218
  Transmission Date: 20220424
  Serious: Yes (Hospitalization, Other)
  Sender: FDA-Public Use
  Company Number: 2022A068318

PATIENT
  Age: 756 Month
  Sex: Male
  Weight: 59 kg

DRUGS (1)
  1. SYMBICORT [Suspect]
     Active Substance: BUDESONIDE\FORMOTEROL FUMARATE DIHYDRATE
     Indication: Chronic obstructive pulmonary disease
     Dosage: 160/4.5 2 PUFFS BID
     Route: 055
     Dates: start: 20190709

REACTIONS (13)
  - Wolff-Parkinson-White syndrome [Unknown]
  - COVID-19 [Unknown]
  - Syncope [Unknown]
  - Dyspnoea exertional [Unknown]
  - Illness [Unknown]
  - Drug ineffective [Unknown]
  - General physical health deterioration [Unknown]
  - Urinary incontinence [Unknown]
  - Panic attack [Unknown]
  - Asthenia [Unknown]
  - Prostatic disorder [Unknown]
  - Feeling abnormal [Unknown]
  - Generalised oedema [Not Recovered/Not Resolved]
